FAERS Safety Report 5337995-8 (Version None)
Quarter: 2007Q2

REPORT INFORMATION
  Report Type: 
  Country: None (occurrence: None)
  Receive Date: 20070530
  Receipt Date: 20070521
  Transmission Date: 20071010
  Serious: Yes (Other)
  Sender: FDA-Public Use
  Company Number: PHEH2007US07689

PATIENT
  Age: 65 Year
  Sex: Female

DRUGS (1)
  1. ZELNORM [Suspect]

REACTIONS (4)
  - ARTHRALGIA [None]
  - CEREBROVASCULAR ACCIDENT [None]
  - PALPITATIONS [None]
  - VERTIGO [None]
